FAERS Safety Report 5007186-9 (Version None)
Quarter: 2006Q1

REPORT INFORMATION
  Report Type: 
  Country: None (occurrence: None)
  Receive Date: 20060327
  Receipt Date: 20051206
  Transmission Date: 20060701
  Serious: Yes (Life-Threatening)
  Sender: FDA-Public Use
  Company Number: 220125

PATIENT
  Age: 45 Year
  Sex: Female
  Weight: 62.1 kg

DRUGS (1)
  1. AVASTIN [Suspect]
     Indication: BREAST CANCER
     Dosage: Q2W
     Route: 042
     Dates: start: 20050831, end: 20051023

REACTIONS (1)
  - OESOPHAGEAL VARICES HAEMORRHAGE [None]
